FAERS Safety Report 4285231-6 (Version None)
Quarter: 2004Q1

REPORT INFORMATION
  Report Type: 
  Country: None (occurrence: None)
  Receive Date: 20040202
  Receipt Date: 20040116
  Transmission Date: 20041129
  Serious: Yes (Hospitalization, Other)
  Sender: FDA-Public Use
  Company Number: USA-2003-0009902

PATIENT
  Age: 69 Year
  Sex: Male

DRUGS (2)
  1. MS CONTIN [Suspect]
     Indication: CANCER PAIN
     Dosage: 30 MG
     Dates: end: 20030923
  2. MORPHINE SULFATE [Suspect]
     Indication: CANCER PAIN
     Dosage: 15 MG

REACTIONS (5)
  - CONDITION AGGRAVATED [None]
  - INADEQUATE ANALGESIA [None]
  - LUNG NEOPLASM MALIGNANT [None]
  - MENTAL STATUS CHANGES [None]
  - PAIN [None]
